FAERS Safety Report 6223550-4 (Version None)
Quarter: 2009Q2

REPORT INFORMATION
  Report Type: 
  Country: None (occurrence: None)
  Receive Date: 20090610
  Receipt Date: 20090527
  Transmission Date: 20091009
  Serious: Yes (Other)
  Sender: FDA-Public Use
  Company Number: 230415K08USA

PATIENT
  Age: 59 Year
  Sex: Female
  Weight: 84 kg

DRUGS (23)
  1. REBIF [Suspect]
     Indication: MULTIPLE SCLEROSIS
     Dosage: 44 MCG, 3 IN 1 WEEKS, SUBCUTANEOUS
     Route: 058
     Dates: start: 20030406
  2. ACCUPRIL [Concomitant]
  3. LEVOXYL [Concomitant]
  4. PRILOSEC [Concomitant]
  5. WELLBUTRIN (IBUPROFEN HYDROCHLORIDE) [Concomitant]
  6. CYCLOBENZAPRINE [Concomitant]
  7. ATENOLOL [Concomitant]
  8. HYDROCHLOROTHIAZIDE [Concomitant]
  9. ASPIRIN [Concomitant]
  10. CALCIUM WITH VITAMIN D (CALCIUM WITH VITAMIN D) [Concomitant]
  11. VITAMIN  E (TOCOPHEROL /00110501/) [Concomitant]
  12. HYDROCODONE AND ACETAMINOPHEN (PROCET /01554201/) [Concomitant]
  13. LIPITOR [Concomitant]
  14. AMOXICILLIN [Concomitant]
  15. VITAMIN B COMPLEX (B-KOMPLEX) [Concomitant]
  16. MAGNESIUM (MAGNESIUM HYDROXIDE) [Concomitant]
  17. FISH OIL (FISH OIL) [Concomitant]
  18. VITAMIN D [Concomitant]
  19. BACLOFEN [Concomitant]
  20. XALATAN [Concomitant]
  21. OXYGEN (OXYGEN) [Concomitant]
  22. ZOCOR (ZOCOR CARDIO ASS) [Concomitant]
  23. FLUTICASONE PROPIONATE [Concomitant]

REACTIONS (5)
  - CONDITION AGGRAVATED [None]
  - FALL [None]
  - FIBULA FRACTURE [None]
  - JOINT SPRAIN [None]
  - OSTEOARTHRITIS [None]
